FAERS Safety Report 6811270-4 (Version None)
Quarter: 2010Q2

REPORT INFORMATION
  Report Type: 
  Country: None (occurrence: None)
  Receive Date: 20100630
  Receipt Date: 20091106
  Transmission Date: 20101027
  Serious: No
  Sender: FDA-Public Use
  Company Number: US-AMGEN-KDL373600

PATIENT
  Sex: Male

DRUGS (7)
  1. PROCRIT [Suspect]
     Indication: ANAEMIA
     Route: 058
     Dates: start: 20090326
  2. PROPRANOLOL [Concomitant]
     Dates: start: 20020101
  3. ALLOPURINOL [Concomitant]
  4. TERAZOSIN HCL [Concomitant]
  5. GABAPENTIN [Concomitant]
  6. FOLIC ACID [Concomitant]
  7. VITAMIN B-12 [Concomitant]

REACTIONS (1)
  - HAEMOGLOBIN DECREASED [None]
